FAERS Safety Report 8372909-8 (Version None)
Quarter: 2012Q2

REPORT INFORMATION
  Report Type: 
  Country: None (occurrence: None)
  Receive Date: 20120521
  Receipt Date: 20120509
  Transmission Date: 20120825
  Serious: Yes (Other)
  Sender: FDA-Public Use
  Company Number: US-ABBOTT-12P-163-0934239-00

PATIENT
  Age: 30 Year
  Sex: Male

DRUGS (3)
  1. PERCOCET [Concomitant]
     Indication: CROHN'S DISEASE
  2. HUMIRA [Suspect]
     Indication: CROHN'S DISEASE
     Dates: start: 20100101
  3. PREDNISONE [Concomitant]
     Indication: PRODUCT USED FOR UNKNOWN INDICATION
     Dosage: PRE AND POST HUMIRA PEN, NOT DURING

REACTIONS (2)
  - INTESTINAL RESECTION [None]
  - LUPUS-LIKE SYNDROME [None]
